FAERS Safety Report 6501841-7 (Version None)
Quarter: 2009Q4

REPORT INFORMATION
  Report Type: 
  Country: None (occurrence: None)
  Receive Date: 20091216
  Receipt Date: 20091110
  Transmission Date: 20100525
  Serious: Yes (Death)
  Sender: FDA-Public Use
  Company Number: ES-SANOFI-AVENTIS-2009SA001637

PATIENT
  Age: 59 Year
  Sex: Female
  Weight: 59 kg

DRUGS (2)
  1. TAXOTERE [Suspect]
     Indication: SARCOMA UTERUS
     Dosage: 750MG/M2
     Route: 042
     Dates: start: 20090205, end: 20090428
  2. GEMZAR [Suspect]
     Indication: SARCOMA UTERUS
     Route: 042
     Dates: start: 20090129, end: 20090428

REACTIONS (1)
  - ACUTE PULMONARY OEDEMA [None]
